FAERS Safety Report 6465551-7 (Version None)
Quarter: 2009Q4

REPORT INFORMATION
  Report Type: 
  Country: None (occurrence: None)
  Receive Date: 20091119
  Receipt Date: 20090924
  Transmission Date: 20100525
  Serious: No
  Sender: FDA-Public Use
  Company Number: WAES0909USA03999

PATIENT
  Age: 30 Year
  Sex: Male

DRUGS (4)
  1. JANUVIA [Suspect]
     Indication: TYPE 2 DIABETES MELLITUS
     Dosage: 100 MG/DAILY/PO
     Route: 048
  2. LIPITOR [Concomitant]
  3. ASPIRIN [Concomitant]
  4. METFORMIN HCL [Concomitant]

REACTIONS (4)
  - HYPERGLYCAEMIA [None]
  - HYPERHIDROSIS [None]
  - MALAISE [None]
  - MIDDLE INSOMNIA [None]
